FAERS Safety Report 14989676 (Version 1)
Quarter: 2018Q2

REPORT INFORMATION
  Report Type: Spontaneous
  Country: US (occurrence: US)
  Receive Date: 20180608
  Receipt Date: 20180608
  Transmission Date: 20180711
  Serious: No
  Sender: FDA-Public Use
  Company Number: US-ROCHE-1920303

PATIENT
  Age: 61 Year
  Sex: Female

DRUGS (18)
  1. ACTEMRA [Suspect]
     Active Substance: TOCILIZUMAB
     Indication: RHEUMATOID ARTHRITIS
     Route: 058
  2. PROGESTERONE. [Concomitant]
     Active Substance: PROGESTERONE
  3. SUMATRIPTAN. [Concomitant]
     Active Substance: SUMATRIPTAN
  4. FLUTICASONE. [Concomitant]
     Active Substance: FLUTICASONE
  5. FISH OIL [Concomitant]
     Active Substance: FISH OIL
  6. ALEVE [Concomitant]
     Active Substance: NAPROXEN SODIUM
  7. VIVELLE-DOT [Concomitant]
     Active Substance: ESTRADIOL
  8. PREDNISONE. [Concomitant]
     Active Substance: PREDNISONE
  9. NORVASC [Concomitant]
     Active Substance: AMLODIPINE BESYLATE
  10. DHEA [Concomitant]
     Active Substance: PRASTERONE
  11. PLAQUENIL [Concomitant]
     Active Substance: HYDROXYCHLOROQUINE SULFATE
  12. CANDESARTAN. [Concomitant]
     Active Substance: CANDESARTAN
  13. NASONEX [Concomitant]
     Active Substance: MOMETASONE FUROATE
  14. RANITIDINE. [Concomitant]
     Active Substance: RANITIDINE
  15. VITAMIN D3 [Concomitant]
     Active Substance: CHOLECALCIFEROL
  16. MAGNESIUM CITRATE. [Concomitant]
     Active Substance: MAGNESIUM CITRATE
  17. LEFLUNOMIDE. [Concomitant]
     Active Substance: LEFLUNOMIDE
  18. COENZYME Q10 COMPLEX (UNK INGREDIENTS) [Concomitant]

REACTIONS (5)
  - Insomnia [Unknown]
  - Fatigue [Unknown]
  - Vision blurred [Unknown]
  - Swelling face [Unknown]
  - Arthralgia [Unknown]
